FAERS Safety Report 21300334 (Version 1)
Quarter: 2022Q3

REPORT INFORMATION
  Report Type: Report from Study
  Country: US (occurrence: US)
  Receive Date: 20220907
  Receipt Date: 20220907
  Transmission Date: 20221026
  Serious: Yes (Other)
  Sender: FDA-Public Use
  Company Number: US-BRISTOL-MYERS SQUIBB COMPANY-2022-100040

PATIENT
  Age: 81 Year
  Sex: Female
  Weight: 142.02 kg

DRUGS (2)
  1. REVLIMID [Suspect]
     Active Substance: LENALIDOMIDE
     Indication: Myelodysplastic syndrome
     Dosage: TAKE 3 CAPSULES DAILY ON MONDAY THROUGH FRIDAY
     Route: 048
     Dates: start: 20210526
  2. REVLIMID [Suspect]
     Active Substance: LENALIDOMIDE
     Dosage: 2 CAPSULES DAILY ON SATURDAY AND SUNDAY
     Route: 048

REACTIONS (2)
  - Laboratory test abnormal [Unknown]
  - Off label use [Unknown]
